FAERS Safety Report 6617994-6 (Version None)
Quarter: 2010Q1

REPORT INFORMATION
  Report Type: 
  Country: None (occurrence: None)
  Receive Date: 20100308
  Receipt Date: 20100226
  Transmission Date: 20100710
  Serious: Yes (Hospitalization)
  Sender: FDA-Public Use
  Company Number: JP-BAYER-200913708BYL

PATIENT
  Age: 61 Year
  Sex: Male
  Weight: 54 kg

DRUGS (12)
  1. NEXAVAR [Suspect]
     Indication: RENAL CELL CARCINOMA
     Dosage: TOTAL DAILY DOSE: 400 MG  UNIT DOSE: 200 MG
     Route: 048
     Dates: start: 20090709, end: 20090928
  2. HIRUDOID [Concomitant]
     Route: 061
  3. CALONAL [Concomitant]
     Dosage: TOTAL DAILY DOSE: 600 MG  UNIT DOSE: 200 MG
     Route: 048
  4. MAGMITT [Concomitant]
     Dosage: TOTAL DAILY DOSE: 990 MG  UNIT DOSE: 330 MG
     Route: 048
  5. LAXOBERON [Concomitant]
     Indication: CONSTIPATION
     Route: 048
  6. GASTER D [Concomitant]
     Dosage: TOTAL DAILY DOSE: 10 MG  UNIT DOSE: 10 MG
     Route: 048
  7. NOVAMIN [Concomitant]
     Dosage: TOTAL DAILY DOSE: 15 MG  UNIT DOSE: 5 MG
     Route: 048
  8. PRIMPERAN [Concomitant]
     Dosage: TOTAL DAILY DOSE: 30 MG  UNIT DOSE: 10 MG
     Route: 048
  9. TRAVELMIN [Concomitant]
     Dosage: TOTAL DAILY DOSE: 3 DF  UNIT DOSE: 1 DF
     Route: 048
  10. MYCOSPOR [Concomitant]
     Route: 061
  11. MYCOSPOR [Concomitant]
     Route: 061
  12. DUROTEP [Concomitant]
     Route: 062

REACTIONS (2)
  - NEUROLOGICAL SYMPTOM [None]
  - VOMITING [None]
